FAERS Safety Report 8199657-1 (Version None)
Quarter: 2012Q1

REPORT INFORMATION
  Report Type: 
  Country: None (occurrence: None)
  Receive Date: 20120311
  Receipt Date: 20120229
  Transmission Date: 20120608
  Serious: Yes (Hospitalization, Other)
  Sender: FDA-Public Use
  Company Number: US-ASTRAZENECA-2012SE14042

PATIENT
  Age: 52 Year
  Sex: Male
  Weight: 88 kg

DRUGS (15)
  1. NIASPAN [Suspect]
     Dosage: 1 TAB (1000 MG), 1 TAB (500 MG) QHS (1500 MG 1 TAB (1000 MG), 1 TAB 500 MG QHS
     Route: 065
     Dates: start: 20100101, end: 20110701
  2. OMEPRAZOLE [Suspect]
     Route: 048
  3. CRESTOR [Suspect]
     Route: 048
  4. ATORVASTATIN CALCIUM [Concomitant]
     Route: 048
  5. ISOSORBIDE DINITRATE [Concomitant]
     Route: 048
  6. RANOLAZINE [Suspect]
     Route: 048
  7. LISINOPRIL [Suspect]
     Route: 048
  8. SIMVASTATIN [Concomitant]
     Indication: BLOOD TRIGLYCERIDES INCREASED
     Route: 048
  9. CLOPIDOGREL BISULFATE [Concomitant]
     Route: 048
  10. EZETIMIBE [Concomitant]
     Route: 048
  11. NIASPAN [Suspect]
     Dosage: 1 TAB (1000 MG), 1 TAB (500 MG) QHS (1500 MG 1 TAB (1000 MG), 1 TAB 500 MG QHS
     Route: 065
     Dates: start: 20120208
  12. NIASPAN [Suspect]
     Route: 065
     Dates: start: 20080101, end: 20080101
  13. ACETYLSALICYLIC ACID SRT [Concomitant]
     Route: 048
  14. SIMVASTATIN [Concomitant]
     Indication: HIGH DENSITY LIPOPROTEIN DECREASED
     Route: 048
  15. EYE CAPS VITAMINS [Concomitant]

REACTIONS (16)
  - DYSPNOEA [None]
  - TINNITUS [None]
  - LIP SWELLING [None]
  - PARAESTHESIA [None]
  - PAIN IN EXTREMITY [None]
  - MUSCLE SPASMS [None]
  - NAUSEA [None]
  - VASCULAR OCCLUSION [None]
  - FLUSHING [None]
  - MYOCARDIAL INFARCTION [None]
  - URTICARIA [None]
  - MOBILITY DECREASED [None]
  - CORONARY ARTERY OCCLUSION [None]
  - CHEST DISCOMFORT [None]
  - CHEST PAIN [None]
  - MYALGIA [None]
